FAERS Safety Report 23979354 (Version 1)
Quarter: 2024Q2

REPORT INFORMATION
  Report Type: Spontaneous
  Country: CN (occurrence: CN)
  Receive Date: 20240615
  Receipt Date: 20240615
  Transmission Date: 20240716
  Serious: Yes (Other)
  Sender: FDA-Public Use
  Company Number: CN-AMGEN-CHNSP2024114829

PATIENT
  Age: 63 Year
  Sex: Male
  Weight: 71.5 kg

DRUGS (1)
  1. KYPROLIS [Suspect]
     Active Substance: CARFILZOMIB
     Indication: Plasma cell myeloma
     Dosage: 60 MILLIGRAM
     Route: 042
     Dates: start: 20240527, end: 20240528

REACTIONS (1)
  - Phlebitis superficial [Recovering/Resolving]

NARRATIVE: CASE EVENT DATE: 20240527
